FAERS Safety Report 21206612 (Version 1)
Quarter: 2022Q3

REPORT INFORMATION
  Report Type: Report from Study
  Country: BR (occurrence: BR)
  Receive Date: 20220812
  Receipt Date: 20220812
  Transmission Date: 20221026
  Serious: Yes (Other)
  Sender: FDA-Public Use
  Company Number: BR-NOVARTISPH-NVSC2022BR181571

PATIENT
  Sex: Male

DRUGS (2)
  1. AMLODIPINE\VALSARTAN [Suspect]
     Active Substance: AMLODIPINE\VALSARTAN
     Indication: Product used for unknown indication
     Dosage: 160/10
     Route: 065
  2. LOSARTAN [Suspect]
     Active Substance: LOSARTAN
     Indication: Product used for unknown indication
     Dosage: UNK
     Route: 065

REACTIONS (6)
  - Infarction [Unknown]
  - Hypotension [Unknown]
  - Back pain [Unknown]
  - Arterial occlusive disease [Unknown]
  - Malaise [Unknown]
  - Drug ineffective [Unknown]
